FAERS Safety Report 5976420-0 (Version None)
Quarter: 2008Q4

REPORT INFORMATION
  Report Type: 
  Country: None (occurrence: None)
  Receive Date: 20081202
  Receipt Date: 20081118
  Transmission Date: 20090506
  Serious: Yes (Hospitalization)
  Sender: FDA-Public Use
  Company Number: JP-GENENTECH-272356

PATIENT
  Sex: Female
  Weight: 42 kg

DRUGS (4)
  1. AVASTIN [Suspect]
     Indication: COLON CANCER
     Dosage: 400 MG, 2/MONTH
     Route: 042
     Dates: start: 20081110
  2. ELPLAT [Concomitant]
     Indication: COLON CANCER
  3. FLUOROURACIL [Concomitant]
     Indication: COLON CANCER
  4. LEUCOVORIN CALCIUM [Concomitant]
     Indication: COLON CANCER

REACTIONS (1)
  - HALLUCINATION [None]
